FAERS Safety Report 5344552-6 (Version None)
Quarter: 2007Q2

REPORT INFORMATION
  Report Type: 
  Country: None (occurrence: None)
  Receive Date: 20070604
  Receipt Date: 20070524
  Transmission Date: 20071010
  Serious: Yes (Other)
  Sender: FDA-Public Use
  Company Number: US-PFIZER INC-2007042640

PATIENT
  Sex: Male

DRUGS (2)
  1. NEURONTIN [Suspect]
  2. LYRICA [Suspect]

REACTIONS (3)
  - ACCIDENT [None]
  - DRUG INEFFECTIVE [None]
  - SYNCOPE [None]
